FAERS Safety Report 13632101 (Version 1)
Quarter: 2017Q2

REPORT INFORMATION
  Report Type: Spontaneous
  Country: US (occurrence: US)
  Receive Date: 20170608
  Receipt Date: 20170608
  Transmission Date: 20170830
  Serious: Yes (Hospitalization)
  Sender: FDA-Public Use
  Company Number: US-ELI_LILLY_AND_COMPANY-US201705012264

PATIENT
  Age: 44 Year
  Sex: Female

DRUGS (3)
  1. GABAPENTINE [Concomitant]
     Active Substance: GABAPENTIN
     Indication: PAIN
  2. HUMULIN R [Suspect]
     Active Substance: INSULIN HUMAN
     Indication: TYPE 2 DIABETES MELLITUS
     Dosage: UNK UNK, UNKNOWN
  3. GABAPENTINE [Concomitant]
     Active Substance: GABAPENTIN
     Indication: FIBROMYALGIA

REACTIONS (6)
  - Nausea [Unknown]
  - Neuropathy peripheral [Not Recovered/Not Resolved]
  - Wound infection [Recovering/Resolving]
  - Impaired gastric emptying [Not Recovered/Not Resolved]
  - Vomiting [Unknown]
  - Food intolerance [Unknown]

NARRATIVE: CASE EVENT DATE: 20170523
